FAERS Safety Report 25375062 (Version 2)
Quarter: 2025Q3

REPORT INFORMATION
  Report Type: Spontaneous
  Country: AR (occurrence: AR)
  Receive Date: 20250529
  Receipt Date: 20250709
  Transmission Date: 20251021
  Serious: No
  Sender: NOVARTIS
  Company Number: AR-002147023-NVSC2025AR085891

PATIENT
  Age: 66 Year
  Sex: Female

DRUGS (1)
  1. SECUKINUMAB [Suspect]
     Active Substance: SECUKINUMAB
     Indication: Psoriasis
     Dosage: 300 MG, QMO
     Route: 058
     Dates: start: 202405, end: 20250521

REACTIONS (1)
  - White blood cell count decreased [Not Recovered/Not Resolved]

NARRATIVE: CASE EVENT DATE: 20250115
